FAERS Safety Report 7275613-2 (Version None)
Quarter: 2011Q1

REPORT INFORMATION
  Report Type: 
  Country: None (occurrence: None)
  Receive Date: 20110204
  Receipt Date: 20110125
  Transmission Date: 20110831
  Serious: No
  Sender: FDA-Public Use
  Company Number: BE-NOVOPROD-321461

PATIENT
  Age: 78 Year
  Sex: Female
  Weight: 56.6 kg

DRUGS (6)
  1. GLUCOPHAGE [Concomitant]
     Dosage: UNK
     Dates: start: 20030302
  2. AMLOR [Concomitant]
     Dosage: UNK
     Dates: start: 20100625
  3. NOVONORM [Concomitant]
     Dosage: UNK
     Dates: start: 20100625
  4. VICTOZA [Suspect]
     Indication: TYPE 2 DIABETES MELLITUS
     Dosage: 1.2 MG, QD
     Route: 058
     Dates: start: 20101201
  5. CO APROVEL [Concomitant]
     Dosage: UNK
     Dates: start: 20070320
  6. ASAFLOW [Concomitant]
     Dosage: UNK

REACTIONS (3)
  - INJECTION SITE PAPULE [None]
  - INJECTION SITE PRURITUS [None]
  - INJECTION SITE INDURATION [None]
